FAERS Safety Report 7020135-7 (Version None)
Quarter: 2010Q3

REPORT INFORMATION
  Report Type: 
  Country: None (occurrence: None)
  Receive Date: 20100929
  Receipt Date: 20100920
  Transmission Date: 20110219
  Serious: Yes (Other)
  Sender: FDA-Public Use
  Company Number: US-NOVOPROD-315033

PATIENT
  Age: 40 Year
  Sex: Male

DRUGS (1)
  1. VICTOZA [Suspect]
     Indication: LATENT AUTOIMMUNE DIABETES IN ADULTS
     Dosage: UNKNOWN
     Route: 058
     Dates: start: 20100523, end: 20100901

REACTIONS (1)
  - PANCREATITIS [None]
